FAERS Safety Report 21003067 (Version 1)
Quarter: 2022Q2

REPORT INFORMATION
  Report Type: Spontaneous
  Country: US (occurrence: None)
  Receive Date: 20220623
  Receipt Date: 20220623
  Transmission Date: 20220721
  Serious: Yes (Hospitalization)
  Sender: FDA-Public Use
  Company Number: None

PATIENT
  Age: 76 Year
  Sex: Female

DRUGS (3)
  1. OPSUMIT [Suspect]
     Active Substance: MACITENTAN
  2. MAGENSIUM OXIDE [Concomitant]
  3. PREDNISONE [Concomitant]

REACTIONS (5)
  - Respiratory failure [None]
  - Oedema peripheral [None]
  - Cardiac failure [None]
  - Interstitial lung disease [None]
  - Therapy cessation [None]

NARRATIVE: CASE EVENT DATE: 20220607
